FAERS Safety Report 15117344 (Version 1)
Quarter: 2018Q3

REPORT INFORMATION
  Report Type: Spontaneous
  Country: US (occurrence: US)
  Receive Date: 20180612
  Receipt Date: 20180612
  Transmission Date: 20181010
  Serious: Yes (Hospitalization)
  Sender: FDA-Public Use
  Company Number: None

PATIENT
  Age: 60 Year
  Sex: Female

DRUGS (5)
  1. NEUTRONTIN [Concomitant]
  2. SYNTHROID ZOFRAN [Concomitant]
  3. FEMARA [Concomitant]
     Active Substance: LETROZOLE
  4. ESCITALOPRAM [Concomitant]
     Active Substance: ESCITALOPRAM OXALATE
  5. IBRANCE [Suspect]
     Active Substance: PALBOCICLIB
     Indication: SMALL INTESTINE CARCINOMA
     Route: 048

REACTIONS (1)
  - Drug dose omission [None]

NARRATIVE: CASE EVENT DATE: 201805
